FAERS Safety Report 5815473-7 (Version None)
Quarter: 2008Q3

REPORT INFORMATION
  Report Type: 
  Country: None (occurrence: None)
  Receive Date: 20080718
  Receipt Date: 20080710
  Transmission Date: 20090109
  Serious: Yes (Hospitalization)
  Sender: FDA-Public Use
  Company Number: US-MERCK-0807USA01847

PATIENT
  Age: 69 Year
  Sex: Female
  Weight: 48 kg

DRUGS (3)
  1. FOSAMAX [Suspect]
     Indication: OSTEOPOROSIS
     Route: 048
     Dates: start: 19970101, end: 20080510
  2. CALCIUM (UNSPECIFIED) [Concomitant]
     Indication: ROUTINE HEALTH MAINTENANCE
     Route: 048
  3. FOSAMAX [Suspect]
     Route: 048
     Dates: start: 20080511, end: 20080613

REACTIONS (6)
  - ACIDOSIS [None]
  - ADVERSE EVENT [None]
  - ATRIAL FIBRILLATION [None]
  - ELECTROLYTE IMBALANCE [None]
  - MUSCLE ATROPHY [None]
  - PULMONARY HYPERTENSION [None]
